FAERS Safety Report 6127776-X (Version None)
Quarter: 2009Q1

REPORT INFORMATION
  Report Type: 
  Country: None (occurrence: None)
  Receive Date: 20090320
  Receipt Date: 20090320
  Transmission Date: 20090719
  Serious: Yes (Hospitalization)
  Sender: FDA-Public Use
  Company Number: None

PATIENT
  Sex: Female
  Weight: 113.8529 kg

DRUGS (1)
  1. BYETTA [Suspect]
     Indication: DIABETES MELLITUS INADEQUATE CONTROL
     Dosage: 10 MCG BID SQ
     Route: 058
     Dates: start: 20080815, end: 20081202

REACTIONS (4)
  - BACTERIAL INFECTION [None]
  - DECREASED APPETITE [None]
  - MOUTH ULCERATION [None]
  - PROCTALGIA [None]
